FAERS Safety Report 11234054 (Version 2)
Quarter: 2015Q3

REPORT INFORMATION
  Report Type: Spontaneous
  Country: IT (occurrence: IT)
  Receive Date: 20150702
  Receipt Date: 20150708
  Transmission Date: 20151125
  Serious: Yes (Hospitalization)
  Sender: FDA-Public Use
  Company Number: IT-JNJFOC-20150621212

PATIENT
  Age: 37 Year
  Sex: Male

DRUGS (6)
  1. PREDNISONE. [Concomitant]
     Active Substance: PREDNISONE
     Route: 065
  2. ARAVA [Concomitant]
     Active Substance: LEFLUNOMIDE
     Route: 048
  3. DIBASE [Concomitant]
     Active Substance: CHOLECALCIFEROL
     Route: 065
  4. REMICADE [Suspect]
     Active Substance: INFLIXIMAB
     Indication: SPONDYLITIS
     Dosage: CYCLIC
     Route: 042
     Dates: start: 20150210, end: 20150403
  5. LANSOX [Concomitant]
     Active Substance: LANSOPRAZOLE
     Route: 065
  6. REMICADE [Suspect]
     Active Substance: INFLIXIMAB
     Indication: SPONDYLITIS
     Dosage: CYCLIC
     Route: 042
     Dates: start: 20150205

REACTIONS (2)
  - Syncope [Recovered/Resolved]
  - Infusion related reaction [Recovered/Resolved]

NARRATIVE: CASE EVENT DATE: 20150403
